FAERS Safety Report 22051844 (Version 1)
Quarter: 2023Q1

REPORT INFORMATION
  Report Type: Spontaneous
  Country: US (occurrence: None)
  Receive Date: 20230302
  Receipt Date: 20230302
  Transmission Date: 20230418
  Serious: No
  Sender: FDA-Public Use
  Company Number: US-Merck Healthcare KGaA-9386450

PATIENT
  Sex: Female

DRUGS (1)
  1. MAVENCLAD [Suspect]
     Active Substance: CLADRIBINE
     Indication: Multiple sclerosis
     Dates: start: 20230221

REACTIONS (5)
  - Headache [Recovering/Resolving]
  - Dizziness [Recovering/Resolving]
  - Abdominal pain upper [Recovering/Resolving]
  - Product packaging issue [Unknown]
  - Circumstance or information capable of leading to medication error [Unknown]
